FAERS Safety Report 23630392 (Version 1)
Quarter: 2024Q1

REPORT INFORMATION
  Report Type: Spontaneous
  Country: CN (occurrence: CN)
  Receive Date: 20240314
  Receipt Date: 20240314
  Transmission Date: 20240410
  Serious: Yes (Hospitalization)
  Sender: FDA-Public Use
  Company Number: CN-SHANGHAI JUNSHI BIOSCIENCES CO., LTD.-CN2023008495

PATIENT

DRUGS (6)
  1. TORIPALIMAB [Suspect]
     Active Substance: TORIPALIMAB
     Indication: Endometrial adenocarcinoma
     Dosage: 240 MG (D2)
     Route: 041
     Dates: start: 20230925, end: 20230925
  2. TORIPALIMAB [Suspect]
     Active Substance: TORIPALIMAB
     Dosage: 240 MG (D1)
     Route: 041
     Dates: start: 20240114, end: 20240114
  3. PACLITAXEL [Suspect]
     Active Substance: PACLITAXEL
     Indication: Endometrial adenocarcinoma
     Dosage: 400 MG (D1?
     Route: 041
     Dates: start: 20230925, end: 20230925
  4. PACLITAXEL [Suspect]
     Active Substance: PACLITAXEL
     Dosage: 400 MG (D2)
     Route: 041
     Dates: start: 20240114, end: 20240114
  5. CARBOPLATIN [Suspect]
     Active Substance: CARBOPLATIN
     Indication: Endometrial adenocarcinoma
     Dosage: 400 MG (D1?
     Route: 041
     Dates: start: 20230925, end: 20230925
  6. CISPLATIN [Suspect]
     Active Substance: CISPLATIN
     Indication: Endometrial adenocarcinoma
     Dosage: 100 MG (D2)
     Route: 041
     Dates: start: 20240114, end: 20240115

REACTIONS (2)
  - Myelosuppression [Recovering/Resolving]
  - Off label use [Unknown]

NARRATIVE: CASE EVENT DATE: 20230925
